FAERS Safety Report 24652870 (Version 1)
Quarter: 2024Q4

REPORT INFORMATION
  Report Type: Spontaneous
  Country: US (occurrence: US)
  Receive Date: 20241122
  Receipt Date: 20241122
  Transmission Date: 20250115
  Serious: No
  Sender: JOHNSON AND JOHNSON
  Company Number: US-JNJFOC-20241119645

PATIENT
  Age: 7 Decade
  Sex: Female

DRUGS (9)
  1. SIMPONI [Suspect]
     Active Substance: GOLIMUMAB
     Indication: Product used for unknown indication
     Route: 058
     Dates: start: 202011
  2. TRAMADOL HYDROCHLORIDE [Suspect]
     Active Substance: TRAMADOL HYDROCHLORIDE
     Indication: Product used for unknown indication
  3. ALLOPURINOL [Concomitant]
     Active Substance: ALLOPURINOL
  4. APIXABAN [Concomitant]
     Active Substance: APIXABAN
  5. CLOBETASOL [Concomitant]
     Active Substance: CLOBETASOL
  6. FUROSEMIDE [Concomitant]
     Active Substance: FUROSEMIDE
  7. GABAPENTIN [Concomitant]
     Active Substance: GABAPENTIN
  8. PREDNISONE [Concomitant]
     Active Substance: PREDNISONE
  9. TRAMADOL [Concomitant]
     Active Substance: TRAMADOL

REACTIONS (3)
  - Red blood cell sedimentation rate increased [Unknown]
  - Nodule [Unknown]
  - Pain [Unknown]
